FAERS Safety Report 18120165 (Version 1)
Quarter: 2020Q3

REPORT INFORMATION
  Report Type: Spontaneous
  Country: DE (occurrence: DE)
  Receive Date: 20200806
  Receipt Date: 20200806
  Transmission Date: 20201103
  Serious: Yes (Hospitalization)
  Sender: FDA-Public Use
  Company Number: NVSC2020DE217451

PATIENT
  Age: 81 Year
  Sex: Male

DRUGS (14)
  1. SALBUTAMOL [Concomitant]
     Active Substance: ALBUTEROL
     Indication: PRODUCT USED FOR UNKNOWN INDICATION
     Dosage: 0.1 MG (BEI BEDARF)
     Route: 055
  2. IPRATROPIUM BROMIDE AND SALBUTAMOL SULFATE [Concomitant]
     Active Substance: ALBUTEROL SULFATE\IPRATROPIUM BROMIDE
     Indication: PRODUCT USED FOR UNKNOWN INDICATION
     Dosage: 0.512 MG/ML ( BEI BEDARF, AMPULES)
     Route: 055
  3. CORVATON [Concomitant]
     Active Substance: MOLSIDOMINE
     Indication: PRODUCT USED FOR UNKNOWN INDICATION
     Dosage: UNK MG, QD (NK MG, 0?0?1?0)
     Route: 048
  4. ACETYLCYSTEIN [Concomitant]
     Active Substance: ACETYLCYSTEINE
     Indication: PRODUCT USED FOR UNKNOWN INDICATION
     Dosage: 600 MG, QD (1?0?0?0)
     Route: 048
  5. METOPROLOL. [Concomitant]
     Active Substance: METOPROLOL
     Indication: PRODUCT USED FOR UNKNOWN INDICATION
     Dosage: 23.75 MG, BID ( 1?0?1?0)
     Route: 048
  6. TORASEMID [Concomitant]
     Active Substance: TORSEMIDE
     Indication: PRODUCT USED FOR UNKNOWN INDICATION
     Dosage: 10 MG ( 0.5?0?0?0)
     Route: 048
  7. SALBUTAMOL [Concomitant]
     Active Substance: ALBUTEROL
     Dosage: 3 GTT ( 1?1?1?1, AMPULLEN)
     Route: 055
  8. PENTALONG [Concomitant]
     Active Substance: PENTAERYTHRITOL TETRANITRATE
     Indication: PRODUCT USED FOR UNKNOWN INDICATION
     Dosage: UNK MG, QD (NK MG, 1?0?0?0)
     Route: 048
  9. OMEPRAZOLE. [Concomitant]
     Active Substance: OMEPRAZOLE
     Indication: PRODUCT USED FOR UNKNOWN INDICATION
     Dosage: 20 MG, BID ( 1?0?1?0)
     Route: 048
  10. DIGITOXIN [Concomitant]
     Active Substance: DIGITOXIN
     Indication: PRODUCT USED FOR UNKNOWN INDICATION
     Dosage: 0.07 MG, QD (1?0?0?0)
     Route: 048
  11. TAMSULOSIN [Concomitant]
     Active Substance: TAMSULOSIN
     Indication: PRODUCT USED FOR UNKNOWN INDICATION
     Dosage: 0.4 MG, QD ( 0?0?1?0)
     Route: 048
  12. ACETYLSALICYLIC ACID [Suspect]
     Active Substance: ASPIRIN
     Indication: PRODUCT USED FOR UNKNOWN INDICATION
     Dosage: 100 MG, QD (0?1?0?0)
     Route: 048
  13. ATORVASTATIN [Concomitant]
     Active Substance: ATORVASTATIN
     Indication: PRODUCT USED FOR UNKNOWN INDICATION
     Dosage: 20 MG, QD (0?0?1?0)
     Route: 048
  14. METAMIZOLE [Concomitant]
     Active Substance: METAMIZOLE
     Indication: PRODUCT USED FOR UNKNOWN INDICATION
     Dosage: 500 MG ( BEI BEDARF)
     Route: 048

REACTIONS (4)
  - General physical health deterioration [Unknown]
  - Wound [Unknown]
  - Pallor [Unknown]
  - Anaemia [Unknown]
